FAERS Safety Report 18376682 (Version 2)
Quarter: 2020Q4

REPORT INFORMATION
  Report Type: Spontaneous
  Country: US (occurrence: US)
  Receive Date: 20201013
  Receipt Date: 20201026
  Transmission Date: 20210114
  Serious: Yes (Death)
  Sender: FDA-Public Use
  Company Number: US-ROCHE-2695460

PATIENT
  Sex: Male

DRUGS (2)
  1. ZELBORAF [Suspect]
     Active Substance: VEMURAFENIB
     Indication: MALIGNANT MELANOMA
     Dosage: 3 TABLETS TWICE DAILY
     Route: 048
     Dates: start: 20200822
  2. COTELLIC [Suspect]
     Active Substance: COBIMETINIB
     Indication: MALIGNANT MELANOMA
     Dosage: FOR 21 DAYS, THEN 7 DAYS OFF, REPEAT EVERY 28 DAYS
     Route: 048
     Dates: start: 20200822

REACTIONS (2)
  - Hypoxia [Fatal]
  - Intracranial tumour haemorrhage [Fatal]
